FAERS Safety Report 14829009 (Version 3)
Quarter: 2018Q3

REPORT INFORMATION
  Report Type: Spontaneous
  Country: JP (occurrence: JP)
  Receive Date: 20180430
  Receipt Date: 20180730
  Transmission Date: 20181010
  Serious: Yes (Other)
  Sender: FDA-Public Use
  Company Number: JP-PFIZER INC-2018173409

PATIENT
  Age: 86 Year
  Sex: Male

DRUGS (5)
  1. DICLOFENAC [Concomitant]
     Active Substance: DICLOFENAC
     Indication: LUMBAR SPINAL STENOSIS
     Dosage: UNK
     Route: 065
     Dates: start: 20170120
  2. ARTZ [Concomitant]
     Active Substance: HYALURONATE SODIUM
     Indication: OSTEOARTHRITIS
  3. CELECOX [Suspect]
     Active Substance: CELECOXIB
     Indication: OSTEOARTHRITIS
     Dosage: 100 MG, 2X/DAY
     Route: 048
     Dates: start: 20180309, end: 20180325
  4. DICLOFENAC [Concomitant]
     Active Substance: DICLOFENAC
     Indication: OSTEOARTHRITIS
  5. ARTZ [Concomitant]
     Active Substance: HYALURONATE SODIUM
     Indication: LUMBAR SPINAL STENOSIS
     Dosage: UNK
     Route: 065
     Dates: start: 20170120

REACTIONS (3)
  - Toxic skin eruption [Recovered/Resolved]
  - Lung disorder [Recovered/Resolved]
  - Syncope [Recovering/Resolving]

NARRATIVE: CASE EVENT DATE: 20180325
